FAERS Safety Report 14044450 (Version 1)
Quarter: 2017Q4

REPORT INFORMATION
  Report Type: Spontaneous
  Country: US (occurrence: US)
  Receive Date: 20171004
  Receipt Date: 20171004
  Transmission Date: 20180321
  Serious: No
  Sender: FDA-Public Use
  Company Number: None

PATIENT
  Age: 62 Year
  Sex: Female
  Weight: 72 kg

DRUGS (3)
  1. COENZYME Q10 [Concomitant]
     Active Substance: UBIDECARENONE
  2. MONTELUKAST [Suspect]
     Active Substance: MONTELUKAST SODIUM
     Indication: SEASONAL ALLERGY
     Dosage: ?          QUANTITY:1 TABLET(S);?
     Route: 048
     Dates: start: 20171002, end: 20171003
  3. DAILY MULTI-VITAMIN [Concomitant]
     Active Substance: VITAMINS

REACTIONS (7)
  - Disorientation [None]
  - Arthralgia [None]
  - Headache [None]
  - Pain in jaw [None]
  - Eyelid oedema [None]
  - Lip swelling [None]
  - Eye irritation [None]

NARRATIVE: CASE EVENT DATE: 20171004
